FAERS Safety Report 5676834-2 (Version None)
Quarter: 2008Q1

REPORT INFORMATION
  Report Type: 
  Country: None (occurrence: None)
  Receive Date: 20080324
  Receipt Date: 20080222
  Transmission Date: 20080703
  Serious: No
  Sender: FDA-Public Use
  Company Number: US-BAYER-200815379NA

PATIENT
  Age: 17 Year
  Sex: Female

DRUGS (5)
  1. YAZ [Suspect]
     Route: 048
  2. ALBUTEROL [Concomitant]
  3. ADVAIR DISKUS 100/50 [Concomitant]
  4. SINGULAIR [Concomitant]
  5. NASACORT [Concomitant]

REACTIONS (1)
  - METRORRHAGIA [None]
